FAERS Safety Report 9291312 (Version 1)
Quarter: 2013Q2

REPORT INFORMATION
  Report Type: Spontaneous
  Country: IR (occurrence: None)
  Receive Date: 20130513
  Receipt Date: 20130513
  Transmission Date: 20140414
  Serious: Yes (Life-Threatening, Other)
  Sender: FDA-Public Use
  Company Number: 2013P1005342

PATIENT
  Age: 40 Year
  Sex: Male

DRUGS (2)
  1. MORPHINE [Suspect]
     Indication: NEPHROLITHIASIS
     Route: 042
  2. MORPHINE [Suspect]
     Indication: PAIN
     Route: 042

REACTIONS (5)
  - Oropharyngeal pain [None]
  - Dysphonia [None]
  - Dyspnoea [None]
  - Palatal oedema [None]
  - Uvulitis [None]
